FAERS Safety Report 10092816 (Version 1)
Quarter: 2014Q2

REPORT INFORMATION
  Report Type: Spontaneous
  Country: US (occurrence: US)
  Receive Date: 20140421
  Receipt Date: 20140421
  Transmission Date: 20141212
  Serious: No
  Sender: FDA-Public Use
  Company Number: US-SANOFI-AVENTIS-2013SA087578

PATIENT
  Age: 53 Year
  Sex: Female

DRUGS (5)
  1. ALLEGRA [Suspect]
     Indication: EYE PRURITUS
     Route: 048
     Dates: start: 20130827
  2. ALLEGRA [Suspect]
     Indication: HEADACHE
     Route: 048
     Dates: start: 20130827
  3. ALLEGRA [Suspect]
     Indication: RHINORRHOEA
     Route: 048
     Dates: start: 20130827
  4. ALLEGRA [Suspect]
     Indication: SNEEZING
     Route: 048
     Dates: start: 20130827
  5. ALLEGRA [Suspect]
     Indication: SINUS CONGESTION
     Route: 048
     Dates: start: 20130827

REACTIONS (1)
  - Insomnia [Not Recovered/Not Resolved]
